FAERS Safety Report 19168496 (Version 2)
Quarter: 2021Q3

REPORT INFORMATION
  Report Type: Spontaneous
  Country: JP (occurrence: JP)
  Receive Date: 20210422
  Receipt Date: 20210709
  Transmission Date: 20211014
  Serious: Yes (Hospitalization)
  Sender: FDA-Public Use
  Company Number: JP-MYLANLABS-2021M1023402

PATIENT
  Age: 8 Year
  Sex: Female

DRUGS (4)
  1. IMMUNOGLOBULIN                     /00025201/ [Suspect]
     Active Substance: HUMAN IMMUNOGLOBULIN G
     Indication: PYODERMA GANGRENOSUM
     Route: 042
  2. INFLIXIMAB [Suspect]
     Active Substance: INFLIXIMAB
     Indication: PYODERMA GANGRENOSUM
     Dosage: 5 MILLIGRAM/KILOGRAM, DURING WEEKS 0, 2, AND 6
     Route: 042
  3. PREDONINE                          /00016203/ [Suspect]
     Active Substance: PREDNISOLONE SODIUM SUCCINATE
     Indication: PYODERMA GANGRENOSUM
     Dosage: 30 MILLIGRAM, QD, 1MG/KG/DAY
     Route: 065
  4. NEORAL [Suspect]
     Active Substance: CYCLOSPORINE
     Indication: PYODERMA GANGRENOSUM
     Dosage: 3.2 MILLIGRAM/KILOGRAM, QD
     Route: 048

REACTIONS (2)
  - Off label use [Unknown]
  - Drug ineffective [Unknown]
